FAERS Safety Report 23717747 (Version 1)
Quarter: 2024Q2

REPORT INFORMATION
  Report Type: Spontaneous
  Country: US (occurrence: None)
  Receive Date: 20240405
  Receipt Date: 20240405
  Transmission Date: 20240716
  Serious: Yes (Death)
  Sender: FDA-Public Use
  Company Number: None

PATIENT
  Age: 64 Year
  Sex: Female
  Weight: 74.25 kg

DRUGS (1)
  1. PEMBROLIZUMAB [Suspect]
     Active Substance: PEMBROLIZUMAB
     Indication: Endometrial cancer
     Dosage: OTHER FREQUENCY : EVERY 6 WEEKS;?
     Route: 042
     Dates: start: 20210104, end: 20220530

REACTIONS (12)
  - Drug resistance [None]
  - Hypothyroidism [None]
  - Coma [None]
  - Radiation injury [None]
  - Muscular weakness [None]
  - Shoulder fracture [None]
  - Immune system disorder [None]
  - Colitis [None]
  - Immobile [None]
  - Colostomy [None]
  - Wound [None]
  - Incision site ulcer [None]

NARRATIVE: CASE EVENT DATE: 20210422
